FAERS Safety Report 6079344-6 (Version None)
Quarter: 2009Q1

REPORT INFORMATION
  Report Type: 
  Country: None (occurrence: None)
  Receive Date: 20090216
  Receipt Date: 20090206
  Transmission Date: 20090719
  Serious: Yes (Other)
  Sender: FDA-Public Use
  Company Number: PHEH2009US01495

PATIENT
  Sex: Female

DRUGS (1)
  1. VIVELLE-DOT [Suspect]

REACTIONS (2)
  - ENDODONTIC PROCEDURE [None]
  - VISION BLURRED [None]
